FAERS Safety Report 6076607-5 (Version None)
Quarter: 2009Q1

REPORT INFORMATION
  Report Type: 
  Country: None (occurrence: None)
  Receive Date: 20090213
  Receipt Date: 20080930
  Transmission Date: 20090719
  Serious: Yes (Hospitalization, Other)
  Sender: FDA-Public Use
  Company Number: US-BRISTOL-MYERS SQUIBB COMPANY-14390280

PATIENT
  Age: 56 Year
  Sex: Female

DRUGS (2)
  1. IXEMPRA KIT [Suspect]
     Indication: BREAST CANCER METASTATIC
     Dosage: 4-5 CYCLE
  2. FLUOROURACIL [Suspect]

REACTIONS (2)
  - FEBRILE NEUTROPENIA [None]
  - MALIGNANT NEOPLASM PROGRESSION [None]
